FAERS Safety Report 13524580 (Version 2)
Quarter: 2017Q2

REPORT INFORMATION
  Report Type: Report from Study
  Country: US (occurrence: US)
  Receive Date: 20170508
  Receipt Date: 20170522
  Transmission Date: 20170830
  Serious: Yes (Hospitalization)
  Sender: FDA-Public Use
  Company Number: US-SEATTLE GENETICS-2017SGN01100

PATIENT
  Age: 19 Year
  Sex: Female

DRUGS (26)
  1. PREDNISONE. [Suspect]
     Active Substance: PREDNISONE
     Indication: HODGKIN^S DISEASE
     Dosage: UNK, QCYCLE
     Route: 048
     Dates: start: 20170407, end: 20170410
  2. ETOPOSIDE. [Suspect]
     Active Substance: ETOPOSIDE
     Indication: HODGKIN^S DISEASE
     Dosage: 125 MG/M2, QCYCLE
     Route: 042
     Dates: start: 20170203, end: 20170311
  3. ZOFRAN [Concomitant]
     Active Substance: ONDANSETRON HYDROCHLORIDE
     Dosage: 8 MG, SINGLE
     Route: 048
     Dates: start: 20170331, end: 20170331
  4. EMEND [Concomitant]
     Active Substance: APREPITANT
     Dosage: 125 UNK, UNK
     Route: 048
     Dates: start: 20170411, end: 20170411
  5. NEUPOGEN [Concomitant]
     Active Substance: FILGRASTIM
     Dosage: 5 ?G/KG, QD
     Route: 042
     Dates: start: 20170329, end: 20170401
  6. MELATONIN [Concomitant]
     Active Substance: MELATONIN
     Dosage: 10 MG, QPM
     Route: 048
     Dates: start: 20170407
  7. PRILOSEC [Concomitant]
     Active Substance: OMEPRAZOLE MAGNESIUM
     Dosage: 20 MG, BID
     Route: 048
     Dates: start: 20170407
  8. BRENTUXIMAB VEDOTIN [Suspect]
     Active Substance: BRENTUXIMAB VEDOTIN
     Indication: HODGKIN^S DISEASE
     Dosage: 1.2 MG/KG, QCYCLE
     Route: 042
     Dates: start: 20170203, end: 20170410
  9. CYCLOPHOSPHAMIDE. [Suspect]
     Active Substance: CYCLOPHOSPHAMIDE
     Indication: HODGKIN^S DISEASE
     Dosage: 500 MG/M2, QCYCLE
     Route: 042
     Dates: start: 20170407, end: 20170410
  10. EMEND [Concomitant]
     Active Substance: APREPITANT
     Dosage: 125 UNK, UNK
     Dates: start: 20170403, end: 20170403
  11. DULCOLAX (BISACODYL) [Concomitant]
     Active Substance: BISACODYL
     Dosage: 10 MG, UNK
     Route: 048
     Dates: start: 20170405, end: 20170406
  12. ATIVAN [Concomitant]
     Active Substance: LORAZEPAM
     Indication: NAUSEA
     Dosage: 1 MG, UNK
     Route: 048
     Dates: start: 20170407, end: 20170507
  13. BENADRYL [Concomitant]
     Active Substance: DIPHENHYDRAMINE HYDROCHLORIDE
     Dosage: 50 MG, PRN
     Route: 042
     Dates: start: 20170329, end: 20170331
  14. NORMAL SALINE [Concomitant]
     Active Substance: SODIUM CHLORIDE
     Dosage: 1000 ML, SINGLE
     Route: 042
     Dates: start: 20170328, end: 20170328
  15. DULCOLAX (BISACODYL) [Concomitant]
     Active Substance: BISACODYL
     Dosage: UNK
  16. MELATONIN [Concomitant]
     Active Substance: MELATONIN
     Dosage: 5 MG, UNK
     Route: 048
     Dates: start: 20170402, end: 20170403
  17. DIFLUCAN [Concomitant]
     Active Substance: FLUCONAZOLE
     Dosage: 200 MG, SINGLE
     Dates: start: 20170411, end: 20170411
  18. DACARBAZINE. [Suspect]
     Active Substance: DACARBAZINE
     Indication: HODGKIN^S DISEASE
     Dosage: 250 MG/M2, QCYCLE
     Route: 042
     Dates: start: 20170407, end: 20170410
  19. ZOFRAN [Concomitant]
     Active Substance: ONDANSETRON HYDROCHLORIDE
     Dosage: 8 MG, Q8HR
     Route: 042
     Dates: start: 20170403, end: 20170404
  20. EMEND [Concomitant]
     Active Substance: APREPITANT
     Dosage: 80 UNK, UNK
     Dates: start: 20170404, end: 20170405
  21. DOXORUBICIN [Suspect]
     Active Substance: DOXORUBICIN
     Indication: HODGKIN^S DISEASE
     Dosage: UNK, QCYCLE
     Route: 042
     Dates: start: 20170203, end: 20170321
  22. OFIRMEV [Concomitant]
     Active Substance: ACETAMINOPHEN
     Dosage: 650 MG, SINGLE
     Route: 042
     Dates: start: 20170329, end: 20170329
  23. EMEND [Concomitant]
     Active Substance: APREPITANT
     Dosage: 80 MG, UNK
     Route: 048
     Dates: start: 20170406, end: 20170407
  24. MIRALAX [Concomitant]
     Active Substance: POLYETHYLENE GLYCOL 3350
     Dosage: 102 G, UNK
     Route: 048
     Dates: start: 20170105, end: 20170407
  25. ATIVAN [Concomitant]
     Active Substance: LORAZEPAM
     Indication: VOMITING
     Dosage: 2 MG/ML, UNK
     Route: 042
     Dates: start: 20170407, end: 20170407
  26. SCOPOLAMINE                        /00008701/ [Concomitant]
     Active Substance: SCOPOLAMINE
     Indication: NAUSEA
     Dosage: 1.5 MG, UNK
     Route: 062

REACTIONS (1)
  - Cytomegalovirus infection [Recovered/Resolved]

NARRATIVE: CASE EVENT DATE: 20170411
